FAERS Safety Report 9960359 (Version 1)
Quarter: 2014Q1

REPORT INFORMATION
  Report Type: Spontaneous
  Country: US (occurrence: US)
  Receive Date: 20140305
  Receipt Date: 20140305
  Transmission Date: 20141002
  Serious: No
  Sender: FDA-Public Use
  Company Number: US-SHIRE-US201400239

PATIENT
  Sex: 0

DRUGS (2)
  1. LIALDA [Suspect]
     Indication: CROHN^S DISEASE
     Dosage: 4.8 G (FOUR 1.2 G TABLETS), 1X/DAY:QD
     Route: 048
     Dates: start: 2007
  2. LIALDA [Suspect]
     Dosage: 4.8 G, 2X/DAY:BID
     Route: 048

REACTIONS (4)
  - Off label use [Not Recovered/Not Resolved]
  - Inappropriate schedule of drug administration [Unknown]
  - Accidental overdose [Unknown]
  - No adverse event [Not Recovered/Not Resolved]
